FAERS Safety Report 10090177 (Version 1)
Quarter: 2014Q2

REPORT INFORMATION
  Report Type: Spontaneous
  Country: US (occurrence: None)
  Receive Date: 20140410
  Receipt Date: 20140410
  Transmission Date: 20141212
  Serious: Yes (Death)
  Sender: FDA-Public Use
  Company Number: CID000000002180697

PATIENT
  Age: 65 Year
  Sex: Female

DRUGS (3)
  1. CEFTRIAXONE [Suspect]
     Indication: URINARY TRACT INFECTION
     Dosage: 1 G (1 G, 1 IN 24 HR), INTRAVENOUS (NOT OTHERWISE SPECIFIED)
     Route: 042
  2. VANCOMYCIN (VANCOMYCIN) [Concomitant]
  3. PIPERACILLIN/TAZOBACTAM (PIPERACILLIN SODIUM, TAZOBACTAM SODIUM) [Concomitant]

REACTIONS (1)
  - Thrombocytopenia [None]
